FAERS Safety Report 10142160 (Version 3)
Quarter: 2014Q2

REPORT INFORMATION
  Report Type: Report from Study
  Country: PT (occurrence: PT)
  Receive Date: 20140429
  Receipt Date: 20140506
  Transmission Date: 20141212
  Serious: Yes (Death)
  Sender: FDA-Public Use
  Company Number: PHHY2014PT051519

PATIENT
  Age: 73 Year
  Sex: Male

DRUGS (1)
  1. CERTICAN [Suspect]
     Dates: start: 20110524, end: 20130222

REACTIONS (3)
  - Accident [Fatal]
  - Hypertension [Unknown]
  - Hypercholesterolaemia [Unknown]
